FAERS Safety Report 4541091-7 (Version None)
Quarter: 2004Q4

REPORT INFORMATION
  Report Type: 
  Country: None (occurrence: None)
  Receive Date: 20041228
  Receipt Date: 20041215
  Transmission Date: 20050328
  Serious: No
  Sender: FDA-Public Use
  Company Number: A01200406356

PATIENT
  Sex: Female

DRUGS (1)
  1. PLAVIX [Suspect]
     Dosage: ORAL
     Route: 048

REACTIONS (3)
  - HYPERSENSITIVITY [None]
  - PHARMACEUTICAL PRODUCT COMPLAINT [None]
  - SWELLING FACE [None]
